FAERS Safety Report 16392373 (Version 5)
Quarter: 2022Q2

REPORT INFORMATION
  Report Type: Other
  Country: US (occurrence: None)
  Receive Date: 20190605
  Receipt Date: 20220530
  Transmission Date: 20220720
  Serious: Yes (Other)
  Sender: FDA-Public Use
  Company Number: US-ROCHE-2293841

PATIENT
  Sex: Male
  Weight: 72.640 kg

DRUGS (11)
  1. OCREVUS [Suspect]
     Active Substance: OCRELIZUMAB
     Indication: Relapsing-remitting multiple sclerosis
     Route: 042
     Dates: start: 201809
  2. OCREVUS [Suspect]
     Active Substance: OCRELIZUMAB
     Indication: Multiple sclerosis
     Dosage: LAST DOSE APPROX 6 MONTHS AGO
     Route: 041
     Dates: start: 2018, end: 2018
  3. OCREVUS [Suspect]
     Active Substance: OCRELIZUMAB
     Indication: Progressive multiple sclerosis
     Route: 065
     Dates: start: 201710
  4. OCREVUS [Suspect]
     Active Substance: OCRELIZUMAB
     Indication: Relapsing multiple sclerosis
     Route: 042
  5. OCREVUS [Suspect]
     Active Substance: OCRELIZUMAB
     Route: 042
  6. TECFIDERA [Suspect]
     Active Substance: DIMETHYL FUMARATE
     Indication: Multiple sclerosis
     Dosage: LAST DOSE 2 WEEKS AGO
     Route: 065
     Dates: start: 2018
  7. ADDERALL XR [Concomitant]
     Active Substance: AMPHETAMINE ASPARTATE\AMPHETAMINE SULFATE\DEXTROAMPHETAMINE SACCHARATE\DEXTROAMPHETAMINE SULFATE
  8. ADDERALL [Concomitant]
     Active Substance: AMPHETAMINE ASPARTATE\AMPHETAMINE SULFATE\DEXTROAMPHETAMINE SACCHARATE\DEXTROAMPHETAMINE SULFATE
  9. ATORVASTATIN [Concomitant]
     Active Substance: ATORVASTATIN
  10. EZETIMIBE [Concomitant]
     Active Substance: EZETIMIBE
  11. TAMSULOSIN [Concomitant]
     Active Substance: TAMSULOSIN

REACTIONS (17)
  - General physical health deterioration [Not Recovered/Not Resolved]
  - Fatigue [Recovered/Resolved]
  - Asthenia [Not Recovered/Not Resolved]
  - Vertigo [Unknown]
  - Dizziness [Unknown]
  - Balance disorder [Not Recovered/Not Resolved]
  - Feeling abnormal [Not Recovered/Not Resolved]
  - Fall [Unknown]
  - Gait disturbance [Recovered/Resolved]
  - Ankle deformity [Recovered/Resolved]
  - Pain [Not Recovered/Not Resolved]
  - Memory impairment [Unknown]
  - Irritability [Unknown]
  - Unevaluable event [Unknown]
  - Dysuria [Unknown]
  - Paraesthesia [Unknown]
  - Sensory loss [Unknown]

NARRATIVE: CASE EVENT DATE: 20180101
